FAERS Safety Report 7803809-7 (Version None)
Quarter: 2011Q4

REPORT INFORMATION
  Report Type: 
  Country: None (occurrence: None)
  Receive Date: 20111010
  Receipt Date: 20110927
  Transmission Date: 20120403
  Serious: Yes (Disabling, Other)
  Sender: FDA-Public Use
  Company Number: US-ELI_LILLY_AND_COMPANY-US201109008306

PATIENT
  Sex: Male

DRUGS (10)
  1. HUMALOG [Suspect]
     Dosage: 9 U, EACH EVENING
  2. LANTUS [Concomitant]
     Dosage: 30 U, BID
  3. HUMALOG [Suspect]
     Dosage: 8 U, OTHER
  4. HUMULIN R [Suspect]
     Indication: DIABETES MELLITUS
  5. HUMULIN 70/30 [Suspect]
     Indication: DIABETES MELLITUS
  6. HUMALOG [Suspect]
     Indication: DIABETES MELLITUS
     Dosage: 10 U, EACH MORNING
  7. HUMALOG [Suspect]
     Dosage: 10 U, EACH MORNING
  8. HUMALOG [Suspect]
     Dosage: 9 U, EACH EVENING
  9. HUMALOG [Suspect]
     Dosage: 8 U, OTHER
  10. HUMULIN N [Suspect]
     Indication: DIABETES MELLITUS

REACTIONS (10)
  - CARDIAC DISORDER [None]
  - MYOCARDIAL INFARCTION [None]
  - BACK DISORDER [None]
  - CARDIOMEGALY [None]
  - WRONG TECHNIQUE IN DRUG USAGE PROCESS [None]
  - EXPIRED DRUG ADMINISTERED [None]
  - EMPHYSEMA [None]
  - HAEMATOCHEZIA [None]
  - ARTERIAL OCCLUSIVE DISEASE [None]
  - DIABETIC NEUROPATHY [None]
